FAERS Safety Report 10235647 (Version 2)
Quarter: 2014Q2

REPORT INFORMATION
  Report Type: Spontaneous
  Country: US (occurrence: US)
  Receive Date: 20140613
  Receipt Date: 20140626
  Transmission Date: 20141212
  Serious: Yes (Other)
  Sender: FDA-Public Use
  Company Number: CHPA2014US007967

PATIENT
  Sex: Female

DRUGS (2)
  1. PREVACID 24HR 15MG [Suspect]
     Indication: PROPHYLAXIS
     Dosage: 15 MG, QD (IN THE MORNING)
     Route: 048
  2. PREVACID 24HR 15MG [Suspect]
     Indication: OFF LABEL USE

REACTIONS (1)
  - Depression [Unknown]
